FAERS Safety Report 20887509 (Version 2)
Quarter: 2022Q2

REPORT INFORMATION
  Report Type: Report from Study
  Country: GT (occurrence: GT)
  Receive Date: 20220528
  Receipt Date: 20220611
  Transmission Date: 20220721
  Serious: Yes (Other)
  Sender: FDA-Public Use
  Company Number: GT-NOVARTISPH-NVSC2022GT121246

PATIENT
  Sex: Female

DRUGS (5)
  1. DIOVAN [Suspect]
     Active Substance: VALSARTAN
     Indication: Hypertension
     Dosage: 320 MG
     Route: 065
  2. DIOVAN [Suspect]
     Active Substance: VALSARTAN
     Dosage: 1 DOSAGE FORM, Q24H
     Route: 065
     Dates: start: 2021
  3. EXFORGE [Suspect]
     Active Substance: AMLODIPINE BESYLATE\VALSARTAN
     Indication: Hypertension
     Dosage: 10/320 MG, STARTED 3 MONTHS AGO
     Route: 065
  4. EXFORGE [Suspect]
     Active Substance: AMLODIPINE BESYLATE\VALSARTAN
     Dosage: 1 DOSAGE FORM OF 10/320 MG, Q24H
     Route: 065
     Dates: start: 202203, end: 20220527
  5. CETAPIN [Concomitant]
     Indication: Diabetes mellitus
     Dosage: 0.5 DOSAGE FORM
     Route: 065
     Dates: start: 2021

REACTIONS (2)
  - Hypertension [Unknown]
  - Blood pressure abnormal [Unknown]
